FAERS Safety Report 7380904-0 (Version None)
Quarter: 2011Q1

REPORT INFORMATION
  Report Type: 
  Country: None (occurrence: None)
  Receive Date: 20110329
  Receipt Date: 20110316
  Transmission Date: 20110831
  Serious: Yes (Hospitalization)
  Sender: FDA-Public Use
  Company Number: PHHY2010US65381

PATIENT
  Sex: Female

DRUGS (3)
  1. EXJADE [Suspect]
     Dosage: 625 MG, QD
     Route: 048
  2. EXJADE [Suspect]
     Dosage: 500 MG QDUD
     Route: 048
  3. DESFERAL [Suspect]

REACTIONS (4)
  - HYPERSENSITIVITY [None]
  - BACTERIAL INFECTION [None]
  - PRURITUS [None]
  - RASH [None]
